FAERS Safety Report 4614924-3 (Version None)
Quarter: 2005Q1

REPORT INFORMATION
  Report Type: 
  Country: None (occurrence: None)
  Receive Date: 20050322
  Receipt Date: 20040906
  Transmission Date: 20050727
  Serious: Yes (Life-Threatening, Hospitalization)
  Sender: FDA-Public Use
  Company Number: AU-ROCHE-379644

PATIENT
  Age: 55 Year
  Sex: Female

DRUGS (20)
  1. DACLIZUMAB [Suspect]
     Route: 042
     Dates: start: 20040609, end: 20040609
  2. DACLIZUMAB [Suspect]
     Route: 042
     Dates: end: 20040805
  3. MYCOPHENOLATE MOFETIL [Suspect]
     Route: 048
     Dates: start: 20040609
  4. MYCOPHENOLATE MOFETIL [Suspect]
     Route: 048
     Dates: start: 20040906, end: 20050215
  5. TACROLIMUS [Suspect]
     Route: 048
     Dates: start: 20040805
  6. TACROLIMUS [Suspect]
     Route: 048
     Dates: start: 20040817, end: 20040904
  7. TACROLIMUS [Suspect]
     Route: 048
     Dates: start: 20040904
  8. PREDNISONE [Suspect]
     Route: 048
     Dates: start: 20040609
  9. SIROLIMUS [Suspect]
     Route: 048
     Dates: start: 20040612, end: 20040804
  10. METHYLPREDNISOLONE [Suspect]
     Route: 042
     Dates: start: 20040901, end: 20040901
  11. METHYLPREDNISOLONE [Suspect]
     Route: 042
  12. OMEPRAZOLE [Concomitant]
     Route: 048
     Dates: start: 20040902
  13. NORFLOXACIN [Concomitant]
     Route: 048
     Dates: start: 20040903
  14. VALACYCLOVIR HCL [Concomitant]
     Route: 048
     Dates: start: 20040901
  15. THYROXINE [Concomitant]
     Route: 048
     Dates: start: 20040901
  16. CALCITRIOL [Concomitant]
     Route: 048
  17. ATENOLOL [Concomitant]
     Route: 048
     Dates: start: 20040618
  18. LIPITOR [Concomitant]
     Route: 048
     Dates: start: 20040710
  19. LASIX [Concomitant]
     Route: 048
     Dates: start: 20040713
  20. SLOW-K [Concomitant]
     Route: 048
     Dates: end: 20040901

REACTIONS (2)
  - BLEEDING TIME PROLONGED [None]
  - LYMPHOPROLIFERATIVE DISORDER [None]
